FAERS Safety Report 14233225 (Version 1)
Quarter: 2017Q4

REPORT INFORMATION
  Report Type: Spontaneous
  Country: US (occurrence: None)
  Receive Date: 20171128
  Receipt Date: 20171128
  Transmission Date: 20180321
  Serious: Yes (Hospitalization)
  Sender: FDA-Public Use
  Company Number: None

PATIENT
  Age: 88 Year
  Sex: Male

DRUGS (2)
  1. WARFARIN [Suspect]
     Active Substance: WARFARIN
     Indication: ATRIAL FIBRILLATION
     Route: 048
     Dates: start: 20110324, end: 20171112
  2. ASPIRIN. [Suspect]
     Active Substance: ASPIRIN
     Route: 048
     Dates: start: 20140202, end: 20171112

REACTIONS (5)
  - Contusion [None]
  - International normalised ratio increased [None]
  - Gastrointestinal haemorrhage [None]
  - Gastric haemorrhage [None]
  - Therapy cessation [None]

NARRATIVE: CASE EVENT DATE: 20171112
